FAERS Safety Report 15712034 (Version 1)
Quarter: 2018Q4

REPORT INFORMATION
  Report Type: Report from Study
  Country: US (occurrence: US)
  Receive Date: 20181212
  Receipt Date: 20181212
  Transmission Date: 20190205
  Serious: No
  Sender: FDA-Public Use
  Company Number: US-IPSEN BIOPHARMACEUTICALS, INC.-2018-18908

PATIENT
  Age: 75 Year
  Sex: Female

DRUGS (1)
  1. LANREOTIDE AUTOGEL [Suspect]
     Active Substance: LANREOTIDE
     Indication: GASTROENTEROPANCREATIC NEUROENDOCRINE TUMOUR DISEASE

REACTIONS (5)
  - Tremor [Unknown]
  - Hyperglycaemia [Unknown]
  - Vision blurred [Unknown]
  - Fatigue [Unknown]
  - Nausea [Unknown]
